FAERS Safety Report 10142982 (Version 2)
Quarter: 2014Q4

REPORT INFORMATION
  Report Type: Spontaneous
  Country: US (occurrence: US)
  Receive Date: 20140430
  Receipt Date: 20141010
  Transmission Date: 20150528
  Serious: Yes (Hospitalization)
  Sender: FDA-Public Use
  Company Number: US-BAYER-2014-063342

PATIENT
  Age: 23 Year
  Sex: Female
  Weight: 78.91 kg

DRUGS (4)
  1. METHYLPREDNISOLONE [METHYLPREDNISOLONE] [Concomitant]
     Dosage: UNK
     Dates: start: 2000
  2. YASMIN [Suspect]
     Active Substance: DROSPIRENONE\ETHINYL ESTRADIOL
     Dosage: UNK
     Route: 048
     Dates: start: 200308, end: 200311
  3. PREDNISONE. [Concomitant]
     Active Substance: PREDNISONE
  4. BENADRYL [Concomitant]
     Active Substance: DIPHENHYDRAMINE HYDROCHLORIDE

REACTIONS (18)
  - Splenic haematoma [Recovering/Resolving]
  - Pulmonary embolism [Recovered/Resolved]
  - Pelvic venous thrombosis [Recovering/Resolving]
  - Splenic infarction [Recovering/Resolving]
  - Abdominal pain [Recovered/Resolved]
  - Cough [Recovered/Resolved]
  - Pulmonary congestion [Recovered/Resolved]
  - Dyspnoea [Recovered/Resolved]
  - Deep vein thrombosis [None]
  - Portal vein thrombosis [Recovering/Resolving]
  - Renal infarct [Recovering/Resolving]
  - Painful respiration [Recovered/Resolved]
  - Lung infiltration [Recovered/Resolved]
  - Injury [Recovered/Resolved]
  - General physical health deterioration [Recovered/Resolved]
  - Splenic vein thrombosis [None]
  - Vena cava thrombosis [Recovering/Resolving]
  - Splenomegaly [None]

NARRATIVE: CASE EVENT DATE: 20031024
